FAERS Safety Report 5526607-6 (Version None)
Quarter: 2007Q4

REPORT INFORMATION
  Report Type: 
  Country: None (occurrence: None)
  Receive Date: 20071127
  Receipt Date: 20071115
  Transmission Date: 20080405
  Serious: Yes (Hospitalization)
  Sender: FDA-Public Use
  Company Number: US-AMGEN-US252956

PATIENT
  Sex: Female
  Weight: 62.7 kg

DRUGS (10)
  1. ENBREL [Suspect]
     Indication: ANKYLOSING SPONDYLITIS
     Route: 058
     Dates: start: 20050818, end: 20050914
  2. PRENATAL VITAMINS [Concomitant]
     Route: 048
     Dates: start: 20050920, end: 20060223
  3. FLAX SEED OIL [Concomitant]
     Route: 048
     Dates: start: 20051107, end: 20060223
  4. DIPHENHYDRAMINE HCL [Concomitant]
     Route: 065
     Dates: start: 20051227, end: 20051227
  5. PREDNISONE TAB [Concomitant]
     Route: 048
     Dates: start: 20051227, end: 20051227
  6. INFLUENZA VACCINE [Concomitant]
     Route: 065
     Dates: start: 20051122, end: 20051122
  7. HEPARIN [Concomitant]
     Route: 042
     Dates: start: 20060223, end: 20060305
  8. ANTIBIOTIC NOS [Concomitant]
     Route: 042
     Dates: start: 20060223, end: 20060305
  9. TYLENOL [Concomitant]
     Route: 048
     Dates: start: 20050818, end: 20060305
  10. UNSPECIFIED MEDICATION [Concomitant]
     Route: 065
     Dates: start: 20060223

REACTIONS (3)
  - AMNIORRHOEA [None]
  - INFECTION [None]
  - PREMATURE LABOUR [None]
